FAERS Safety Report 6404237-1 (Version None)
Quarter: 2009Q4

REPORT INFORMATION
  Report Type: 
  Country: None (occurrence: None)
  Receive Date: 20091016
  Receipt Date: 20091014
  Transmission Date: 20100525
  Serious: Yes (Other)
  Sender: FDA-Public Use
  Company Number: A0624587A

PATIENT
  Age: 83 Year
  Sex: Female

DRUGS (7)
  1. FLOVENT [Suspect]
     Indication: BRONCHITIS
     Dosage: 2PUFF TWICE PER DAY
     Route: 055
     Dates: start: 20091004
  2. ADVAIR DISKUS 100/50 [Suspect]
     Indication: EMPHYSEMA
     Route: 055
     Dates: start: 20060912, end: 20060928
  3. FOSAMAX [Concomitant]
  4. COMBIVENT [Concomitant]
  5. ASPIRIN [Concomitant]
  6. VITAMIN D [Concomitant]
  7. CALCIUM [Concomitant]

REACTIONS (5)
  - DYSPHONIA [None]
  - LOWER RESPIRATORY TRACT INFECTION [None]
  - RASH [None]
  - URINARY INCONTINENCE [None]
  - VISION BLURRED [None]
